FAERS Safety Report 8907579 (Version 1)
Quarter: 2012Q4

REPORT INFORMATION
  Report Type: Report from Study
  Country: BR (occurrence: BR)
  Receive Date: 20121113
  Receipt Date: 20121113
  Transmission Date: 20130627
  Serious: Yes (Other)
  Sender: FDA-Public Use
  Company Number: BR-PFIZER INC-2012281146

PATIENT
  Age: 79 Year
  Sex: Female
  Weight: 55 kg

DRUGS (3)
  1. LIPITOR [Suspect]
     Indication: CHOLESTEROL
     Dosage: 40 mg, UNK
     Dates: start: 2005
  2. LIPITOR [Suspect]
     Dosage: 20 mg, UNK
  3. LIPITOR [Suspect]
     Dosage: 10 mg, 1x/day
     Route: 048
     Dates: start: 2009

REACTIONS (1)
  - Aortic disorder [Unknown]
